FAERS Safety Report 7721553-1 (Version None)
Quarter: 2011Q3

REPORT INFORMATION
  Report Type: 
  Country: None (occurrence: None)
  Receive Date: 20110825
  Receipt Date: 20110809
  Transmission Date: 20111222
  Serious: Yes (Hospitalization)
  Sender: FDA-Public Use
  Company Number: 2011MA011573

PATIENT
  Age: 66 Year
  Sex: Female

DRUGS (4)
  1. IBUPROFEN [Suspect]
     Indication: PAIN
     Dosage: 200 MG;TID
  2. CISPLATIN [Suspect]
     Indication: LUNG NEOPLASM MALIGNANT
     Dosage: 70 MG/M2; Q3W
     Dates: start: 20080101, end: 20080701
  3. ERLOTINIB HYDROCHLORIDE [Suspect]
     Indication: LUNG NEOPLASM MALIGNANT
     Dates: start: 20081001
  4. DOCETAXEL [Suspect]
     Indication: LUNG NEOPLASM MALIGNANT
     Dosage: 70 MG/M2;Q3W
     Dates: start: 20080101, end: 20080701

REACTIONS (7)
  - INTESTINAL PERFORATION [None]
  - PNEUMONIA [None]
  - LUMBAR VERTEBRAL FRACTURE [None]
  - COMPRESSION FRACTURE [None]
  - ENTEROCUTANEOUS FISTULA [None]
  - OSTEOPOROSIS [None]
  - FALL [None]
